FAERS Safety Report 6566646-X (Version None)
Quarter: 2010Q1

REPORT INFORMATION
  Report Type: 
  Country: None (occurrence: None)
  Receive Date: 20100202
  Receipt Date: 20100121
  Transmission Date: 20100710
  Serious: Yes (Hospitalization)
  Sender: FDA-Public Use
  Company Number: SE-GENENTECH-296301

PATIENT
  Age: 72 Year
  Sex: Male

DRUGS (9)
  1. MABTHERA [Suspect]
     Indication: WALDENSTROM'S MACROGLOBULINAEMIA
     Dosage: 800 MG, UNK
     Route: 042
     Dates: start: 20071121, end: 20090608
  2. BRICANYL TURBOHALER [Concomitant]
     Indication: DRUG USE FOR UNKNOWN INDICATION
     Dosage: 0.5 MG, UNK
  3. SYMBICORT [Concomitant]
     Indication: DRUG USE FOR UNKNOWN INDICATION
  4. SPIRIVA [Concomitant]
     Indication: DRUG USE FOR UNKNOWN INDICATION
  5. ACETYLCYSTEINE [Concomitant]
     Indication: DRUG USE FOR UNKNOWN INDICATION
  6. LEUKERAN [Concomitant]
     Indication: DRUG USE FOR UNKNOWN INDICATION
  7. FLUDARA [Concomitant]
     Indication: DRUG USE FOR UNKNOWN INDICATION
  8. SENDOXAN [Concomitant]
     Indication: DRUG USE FOR UNKNOWN INDICATION
  9. IBRUPROFEN [Concomitant]
     Indication: DRUG USE FOR UNKNOWN INDICATION

REACTIONS (1)
  - HEPATITIS [None]
